FAERS Safety Report 5204897-7 (Version None)
Quarter: 2007Q1

REPORT INFORMATION
  Report Type: 
  Country: None (occurrence: None)
  Receive Date: 20070110
  Receipt Date: 20060828
  Transmission Date: 20070707
  Serious: No
  Sender: FDA-Public Use
  Company Number: US-BRISTOL-MYERS SQUIBB COMPANY-13490271

PATIENT
  Age: 44 Year
  Sex: Female
  Weight: 84 kg

DRUGS (6)
  1. ABILIFY [Suspect]
     Indication: BIPOLAR DISORDER
  2. VICODIN [Concomitant]
  3. NEURONTIN [Concomitant]
  4. ZOLOFT [Concomitant]
  5. XANAX [Concomitant]
  6. CYMBALTA [Concomitant]

REACTIONS (2)
  - HEADACHE [None]
  - OEDEMA PERIPHERAL [None]
